FAERS Safety Report 7702962-3 (Version None)
Quarter: 2011Q3

REPORT INFORMATION
  Report Type: 
  Country: None (occurrence: None)
  Receive Date: 20110823
  Receipt Date: 20110812
  Transmission Date: 20111222
  Serious: Yes (Death, Hospitalization, Other)
  Sender: FDA-Public Use
  Company Number: PHHY2011JP40060

PATIENT
  Sex: Male
  Weight: 56 kg

DRUGS (7)
  1. MECOBALAMIN [Concomitant]
     Dosage: 0.5 MG, UNK
     Route: 048
     Dates: start: 20070309, end: 20090330
  2. PROMAC [Concomitant]
     Dosage: 150 MG, UNK
     Route: 048
     Dates: start: 20060823, end: 20090330
  3. CANDESARTAN CILEXETIL [Concomitant]
     Indication: HYPERTENSION
     Dosage: 4 MG, UNK
     Route: 048
     Dates: start: 20060304, end: 20080526
  4. SIGMART [Concomitant]
     Dosage: 15 MG, UNK
     Route: 048
     Dates: start: 20060304, end: 20090330
  5. LANSOPRAZOLE [Concomitant]
     Dosage: 15 MG, UNK
     Route: 048
     Dates: start: 20060823
  6. VALSARTAN [Suspect]
     Indication: HYPERTENSION
     Dosage: 40 MG, QD
     Route: 048
     Dates: start: 20080527
  7. GASMOTIN [Concomitant]
     Dosage: 15 MG, UNK
     Route: 048
     Dates: start: 20070731, end: 20090330

REACTIONS (2)
  - LIVER CARCINOMA RUPTURED [None]
  - BLOOD PRESSURE DIASTOLIC DECREASED [None]
